FAERS Safety Report 20667039 (Version 1)
Quarter: 2022Q2

REPORT INFORMATION
  Report Type: Spontaneous
  Country: US (occurrence: US)
  Receive Date: 20220404
  Receipt Date: 20220404
  Transmission Date: 20220721
  Serious: No
  Sender: FDA-Public Use
  Company Number: US-JNJFOC-20220362345

PATIENT
  Sex: Female

DRUGS (2)
  1. MACITENTAN [Suspect]
     Active Substance: MACITENTAN
     Indication: Product used for unknown indication
     Route: 048
  2. BOSENTAN [Suspect]
     Active Substance: BOSENTAN
     Indication: Product used for unknown indication
     Route: 048

REACTIONS (2)
  - Headache [Unknown]
  - Pain in extremity [Unknown]
